FAERS Safety Report 10106061 (Version 2)
Quarter: 2014Q3

REPORT INFORMATION
  Report Type: Other
  Country: US (occurrence: US)
  Receive Date: 20140424
  Receipt Date: 20140715
  Transmission Date: 20150326
  Serious: Yes (Death, Hospitalization, Other)
  Sender: FDA-Public Use
  Company Number: US-GSKPPD-2014GSK000918

PATIENT
  Age: 75 Year
  Sex: Female
  Weight: 102 kg

DRUGS (7)
  1. AVANDIA [Suspect]
     Active Substance: ROSIGLITAZONE MALEATE
     Indication: DIABETES MELLITUS
     Route: 048
     Dates: start: 200110
  2. ASPIRIN. [Concomitant]
     Active Substance: ASPIRIN
  3. CARDURA [Concomitant]
     Active Substance: DOXAZOSIN MESYLATE
  4. LASIX [Concomitant]
     Active Substance: FUROSEMIDE
     Route: 048
  5. LOPRESSOR [Concomitant]
     Active Substance: METOPROLOL TARTRATE
  6. DIOVAN [Concomitant]
     Active Substance: VALSARTAN
  7. NITROL [Concomitant]
     Active Substance: NITROGLYCERIN

REACTIONS (2)
  - Myocardial infarction [Recovered/Resolved]
  - Death [Fatal]

NARRATIVE: CASE EVENT DATE: 20040905
